FAERS Safety Report 8920911 (Version 2)
Quarter: 2012Q4

REPORT INFORMATION
  Report Type: 
  Country: BE (occurrence: BE)
  Receive Date: 20121123
  Receipt Date: 20121210
  Transmission Date: 20130627
  Serious: Yes (Hospitalization)
  Sender: FDA-Public Use
  Company Number: BE-AMGEN-BELSP2012072688

PATIENT
  Age: 44 Year
  Sex: Male
  Weight: 95 kg

DRUGS (1)
  1. NEUPOGEN [Suspect]
     Indication: HAEMATOPOIETIC STEM CELL MOBILISATION
     Dosage: 480 mug/0.5ml, bid
     Route: 058
     Dates: start: 20110408, end: 20110412

REACTIONS (4)
  - Pain [Unknown]
  - Headache [Recovered/Resolved]
  - Nausea [Recovered/Resolved]
  - Vomiting [Recovered/Resolved]
